FAERS Safety Report 4451967-7 (Version None)
Quarter: 2004Q3

REPORT INFORMATION
  Report Type: 
  Country: None (occurrence: None)
  Receive Date: 20040917
  Receipt Date: 20040907
  Transmission Date: 20050211
  Serious: Yes (Other)
  Sender: FDA-Public Use
  Company Number: US-JNJFOC-20040902458

PATIENT
  Age: 50 Year
  Sex: Female
  Weight: 68.04 kg

DRUGS (2)
  1. DURAGESIC [Suspect]
     Route: 062
     Dates: start: 20021201, end: 20040801
  2. DURAGESIC [Suspect]
     Route: 062
     Dates: start: 20021201, end: 20040801

REACTIONS (15)
  - ANOREXIA [None]
  - ASTHENIA [None]
  - BRADYCARDIA [None]
  - BREAST MICROCALCIFICATION [None]
  - CHEST PAIN [None]
  - DIZZINESS [None]
  - DRUG WITHDRAWAL SYNDROME [None]
  - FATIGUE [None]
  - FLANK PAIN [None]
  - HYPERHIDROSIS [None]
  - NAUSEA [None]
  - PROTEINURIA [None]
  - RENAL IMPAIRMENT [None]
  - VOMITING [None]
  - WEIGHT DECREASED [None]
